FAERS Safety Report 24140033 (Version 2)
Quarter: 2024Q4

REPORT INFORMATION
  Report Type: Spontaneous
  Country: US (occurrence: US)
  Receive Date: 20240726
  Receipt Date: 20241201
  Transmission Date: 20250114
  Serious: No
  Sender: BAUSCH AND LOMB
  Company Number: US-BAUSCHBL-2024BNL030288

PATIENT
  Age: 73 Year
  Sex: Female

DRUGS (1)
  1. MIEBO [Suspect]
     Active Substance: PERFLUOROHEXYLOCTANE
     Indication: Dry eye
     Route: 065

REACTIONS (7)
  - Dizziness [Unknown]
  - Dry eye [Unknown]
  - Impaired driving ability [Unknown]
  - Retinal disorder [Unknown]
  - Visual impairment [Unknown]
  - Therapy interrupted [Unknown]
  - Product availability issue [Unknown]
